FAERS Safety Report 6446830-6 (Version None)
Quarter: 2009Q4

REPORT INFORMATION
  Report Type: 
  Country: None (occurrence: None)
  Receive Date: 20091119
  Receipt Date: 20091110
  Transmission Date: 20100525
  Serious: Yes (Hospitalization, Other)
  Sender: FDA-Public Use
  Company Number: PHHY2009JP42344

PATIENT
  Age: 81 Year
  Sex: Male

DRUGS (4)
  1. GLEEVEC [Suspect]
     Indication: CHRONIC MYELOID LEUKAEMIA
     Dosage: UNK
     Route: 048
     Dates: start: 20050201
  2. GLEEVEC [Suspect]
     Dosage: UNK
     Route: 048
     Dates: start: 20070101, end: 20081001
  3. GLEEVEC [Suspect]
     Dosage: UNK
     Route: 048
     Dates: start: 20081201, end: 20090401
  4. GLEEVEC [Suspect]
     Dosage: UNK
     Route: 048
     Dates: start: 20090401

REACTIONS (8)
  - ANAEMIA [None]
  - BLOOD IMMUNOGLOBULIN A INCREASED [None]
  - BONE MARROW FAILURE [None]
  - CHRONIC MYELOID LEUKAEMIA [None]
  - MALIGNANT NEOPLASM PROGRESSION [None]
  - MULTIPLE MYELOMA [None]
  - RECURRENT CANCER [None]
  - WHITE BLOOD CELL COUNT INCREASED [None]
